FAERS Safety Report 9439328 (Version 1)
Quarter: 2013Q3

REPORT INFORMATION
  Report Type: Spontaneous
  Country: US (occurrence: US)
  Receive Date: 20130804
  Receipt Date: 20130804
  Transmission Date: 20140515
  Serious: No
  Sender: FDA-Public Use
  Company Number: US-009507513-1308USA000121

PATIENT
  Age: 73 Year
  Sex: Female

DRUGS (3)
  1. SINGULAIR [Suspect]
     Indication: HYPERSENSITIVITY
     Dosage: 10 MG TABLET ONCE PER DAY IN EVENING
     Route: 048
     Dates: start: 20130718
  2. SINGULAIR [Suspect]
     Indication: COUGH
  3. SINGULAIR [Suspect]
     Indication: ASTHMA

REACTIONS (1)
  - Drug ineffective [Not Recovered/Not Resolved]
